FAERS Safety Report 6213850-6 (Version None)
Quarter: 2009Q2

REPORT INFORMATION
  Report Type: 
  Country: None (occurrence: None)
  Receive Date: 20090601
  Receipt Date: 20090601
  Transmission Date: 20091009
  Serious: Yes (Other)
  Sender: FDA-Public Use
  Company Number: None

PATIENT
  Sex: Female
  Weight: 113.3993 kg

DRUGS (4)
  1. PREDNISONE [Suspect]
     Indication: ASTHMA
     Dosage: 40 MG QD PO
     Route: 048
     Dates: start: 20090521, end: 20090525
  2. PREDNISONE [Suspect]
     Indication: CONDITION AGGRAVATED
     Dosage: 40 MG QD PO
     Route: 048
     Dates: start: 20090521, end: 20090525
  3. FLOVENT AEROSOL HFA [Concomitant]
  4. ALBUTEROL AEROSOL HFA [Concomitant]

REACTIONS (13)
  - BEDRIDDEN [None]
  - BURNING SENSATION [None]
  - DECREASED APPETITE [None]
  - DYSPNOEA [None]
  - FLANK PAIN [None]
  - HEADACHE [None]
  - MUSCLE SPASMS [None]
  - MYALGIA [None]
  - MYODESOPSIA [None]
  - NAUSEA [None]
  - SCIATICA [None]
  - VERTIGO [None]
  - WEIGHT INCREASED [None]
